FAERS Safety Report 5737188-6 (Version None)
Quarter: 2008Q2

REPORT INFORMATION
  Report Type: 
  Country: None (occurrence: None)
  Receive Date: 20080514
  Receipt Date: 20080505
  Transmission Date: 20081010
  Serious: Yes (Hospitalization, Other)
  Sender: FDA-Public Use
  Company Number: US-JNJFOC-20030800793

PATIENT
  Sex: Female
  Weight: 53.07 kg

DRUGS (13)
  1. REMICADE [Suspect]
  2. REMICADE [Suspect]
  3. REMICADE [Suspect]
     Indication: CROHN'S DISEASE
  4. VITAMINS [Concomitant]
  5. CALCIUM [Concomitant]
  6. SYNTHROID [Concomitant]
  7. EVISTA [Concomitant]
  8. FOLIC ACID [Concomitant]
  9. IMURAN [Concomitant]
  10. PENTASA [Concomitant]
  11. SEREVENT [Concomitant]
  12. PREDNISONE TAB [Concomitant]
  13. PAXIL [Concomitant]

REACTIONS (1)
  - LUPUS-LIKE SYNDROME [None]
